FAERS Safety Report 15940611 (Version 3)
Quarter: 2019Q2

REPORT INFORMATION
  Report Type: Spontaneous
  Country: PL (occurrence: PL)
  Receive Date: 20190208
  Receipt Date: 20190503
  Transmission Date: 20190711
  Serious: Yes (Other)
  Sender: FDA-Public Use
  Company Number: PL-MYLANLABS-2019M1011262

PATIENT
  Age: 64 Year
  Sex: Female

DRUGS (14)
  1. DOXORUBICIN [Suspect]
     Active Substance: DOXORUBICIN
     Dosage: UNK, CYCLE (3 CYCLES )
     Route: 065
  2. RITUXIMAB. [Suspect]
     Active Substance: RITUXIMAB
     Indication: B-CELL LYMPHOMA
     Dosage: UNK, CYCLE
  3. PEGFILGRASTIM [Suspect]
     Active Substance: PEGFILGRASTIM
     Indication: PROPHYLAXIS
     Dosage: UNK
     Route: 065
  4. PREDNISONE. [Concomitant]
     Active Substance: PREDNISONE
     Indication: B-CELL LYMPHOMA
  5. PEGFILGRASTIM [Suspect]
     Active Substance: PEGFILGRASTIM
     Dosage: UNK, CYCLE
  6. VINCRISTINE [Suspect]
     Active Substance: VINCRISTINE
     Indication: B-CELL LYMPHOMA
     Dosage: UNK, CYCLE
  7. ENDOXAN                            /00021102/ [Suspect]
     Active Substance: CYCLOPHOSPHAMIDE
     Indication: B-CELL LYMPHOMA
     Dosage: UNK, CYCLE (3 CYCLES)
  8. PREDNISOLONE. [Suspect]
     Active Substance: PREDNISOLONE
     Dosage: UNK, CYCLE
  9. DOXORUBICIN [Suspect]
     Active Substance: DOXORUBICIN
     Indication: B-CELL LYMPHOMA
     Dosage: UNK UNK, Q3W
  10. PREDNISOLONE. [Suspect]
     Active Substance: PREDNISOLONE
     Indication: B-CELL LYMPHOMA
     Dosage: UNK
  11. RITUXIMAB. [Suspect]
     Active Substance: RITUXIMAB
     Indication: UTERINE CANCER
     Dosage: UNK UNK, Q3W
  12. VINCRISTINE [Suspect]
     Active Substance: VINCRISTINE
     Indication: UTERINE CANCER
     Dosage: UNK UNK, Q3W
  13. PREDNISONE. [Concomitant]
     Active Substance: PREDNISONE
     Indication: UTERINE CANCER
     Dosage: UNK UNK, Q3W
  14. ENDOXAN                            /00021102/ [Suspect]
     Active Substance: CYCLOPHOSPHAMIDE
     Indication: UTERINE CANCER
     Dosage: UNK UNK, Q3W

REACTIONS (11)
  - General physical health deterioration [Unknown]
  - Product use in unapproved indication [Unknown]
  - Abscess intestinal [Unknown]
  - Uterine enlargement [Unknown]
  - Pneumonia [Unknown]
  - Dyspnoea [Unknown]
  - Febrile neutropenia [Unknown]
  - Hydrometra [Unknown]
  - Neutropenia [Unknown]
  - Drug ineffective [Unknown]
  - Abdominal pain [Unknown]
